FAERS Safety Report 7600304-5 (Version None)
Quarter: 2011Q3

REPORT INFORMATION
  Report Type: 
  Country: None (occurrence: None)
  Receive Date: 20110706
  Receipt Date: 20110706
  Transmission Date: 20111222
  Serious: No
  Sender: FDA-Public Use
  Company Number: None

PATIENT
  Age: 3 Year
  Sex: Female
  Weight: 17.2367 kg

DRUGS (1)
  1. CHILDREN'S TYLENOL SUSPENSION [Suspect]
     Indication: PYREXIA
     Dosage: 2 TABLETS EVERY 4 HOURS PO
     Route: 048
     Dates: start: 20110625, end: 20110630

REACTIONS (2)
  - DISCOMFORT [None]
  - GASTROINTESTINAL PAIN [None]
